FAERS Safety Report 10210445 (Version 1)
Quarter: 2014Q2

REPORT INFORMATION
  Report Type: Report from Study
  Country: US (occurrence: US)
  Receive Date: 20140602
  Receipt Date: 20140602
  Transmission Date: 20141212
  Serious: Yes (Hospitalization)
  Sender: FDA-Public Use
  Company Number: US-ALEXION-A201402084

PATIENT
  Sex: 0

DRUGS (11)
  1. SOLIRIS [Suspect]
     Indication: PAROXYSMAL NOCTURNAL HAEMOGLOBINURIA
     Dosage: 900 MG, Q2W
     Route: 042
     Dates: start: 20121113
  2. LISINOPRIL [Concomitant]
     Indication: HYPERTENSION
     Dosage: 20 MG, PRN
     Route: 065
     Dates: start: 20110701
  3. PRILOSEC                           /00661201/ [Concomitant]
     Indication: PRODUCT USED FOR UNKNOWN INDICATION
     Dosage: 20 MG, QD
     Route: 065
     Dates: start: 20110701
  4. TRAMADOL [Concomitant]
     Indication: PAIN
     Dosage: 100 MG, PRN
     Route: 065
     Dates: start: 20110701
  5. VITAMIN D                          /00107901/ [Concomitant]
     Indication: PRODUCT USED FOR UNKNOWN INDICATION
     Dosage: 1000 MG, QD
     Route: 065
     Dates: start: 20110701
  6. VITAMIN B12                        /00056201/ [Concomitant]
     Indication: PRODUCT USED FOR UNKNOWN INDICATION
     Dosage: 1000 MG, QD
     Route: 065
     Dates: start: 20110711
  7. FOLIC ACID [Concomitant]
     Indication: PRODUCT USED FOR UNKNOWN INDICATION
     Dosage: 1000 MCG, UNK
     Route: 065
     Dates: start: 20110711
  8. ASPIRINE [Concomitant]
     Indication: ANTICOAGULANT THERAPY
     Dosage: 1 TAB UNK, QD
     Route: 048
     Dates: start: 20110826
  9. PLAVIX [Concomitant]
     Indication: ANTICOAGULANT THERAPY
     Dosage: UNK, QD 1 TAB
     Route: 048
     Dates: start: 20110826
  10. CYCLOSPORINE [Concomitant]
     Indication: IMMUNOSUPPRESSION
     Dosage: 100 MG, BID
     Route: 065
     Dates: start: 20120815
  11. EXJADE [Concomitant]
     Indication: PRODUCT USED FOR UNKNOWN INDICATION
     Dosage: UNK
     Route: 065
     Dates: start: 20130430

REACTIONS (2)
  - Splenectomy [Unknown]
  - Constipation [Unknown]
